FAERS Safety Report 8159733-6 (Version None)
Quarter: 2012Q1

REPORT INFORMATION
  Report Type: 
  Country: None (occurrence: None)
  Receive Date: 20120223
  Receipt Date: 20120218
  Transmission Date: 20120608
  Serious: Yes (Hospitalization)
  Sender: FDA-Public Use
  Company Number: US-BAYER-2011-024453

PATIENT
  Age: 38 Year
  Sex: Female
  Weight: 111.11 kg

DRUGS (5)
  1. YAZ [Suspect]
     Indication: PREMENSTRUAL SYNDROME
     Dosage: UNK
     Route: 048
     Dates: start: 20080901, end: 20091001
  2. ADIPEX [Concomitant]
     Indication: INCREASED APPETITE
     Route: 048
  3. ZYRTEC [Concomitant]
     Indication: HYPERSENSITIVITY
     Route: 048
  4. PRILOSEC [Concomitant]
  5. LOESTRIN 1.5/30 [Concomitant]
     Dosage: UNK
     Route: 048
     Dates: start: 20091001

REACTIONS (4)
  - CHOLELITHIASIS [None]
  - ABDOMINAL PAIN [None]
  - PAIN [None]
  - INJURY [None]
